FAERS Safety Report 7086447-6 (Version None)
Quarter: 2010Q4

REPORT INFORMATION
  Report Type: 
  Country: None (occurrence: None)
  Receive Date: 20101105
  Receipt Date: 20101028
  Transmission Date: 20110411
  Serious: Yes (Hospitalization)
  Sender: FDA-Public Use
  Company Number: GXBR2010US01800

PATIENT
  Sex: Male
  Weight: 63.492 kg

DRUGS (1)
  1. AMOXICILLIN AND CLAVULANATE POTASSIUM [Suspect]
     Indication: BRONCHITIS
     Dosage: 875/125MG BID
     Route: 048
     Dates: start: 20100920, end: 20101003

REACTIONS (8)
  - BRONCHITIS [None]
  - CARDIAC FAILURE CONGESTIVE [None]
  - COUGH [None]
  - DRUG INEFFECTIVE [None]
  - DYSPNOEA [None]
  - PRODUCT COATING ISSUE [None]
  - PRODUCT COLOUR ISSUE [None]
  - PRODUCT ODOUR ABNORMAL [None]
